FAERS Safety Report 23866133 (Version 1)
Quarter: 2024Q2

REPORT INFORMATION
  Report Type: Report from Study
  Country: US (occurrence: US)
  Receive Date: 20240517
  Receipt Date: 20240517
  Transmission Date: 20240716
  Serious: Yes (Other)
  Sender: FDA-Public Use
  Company Number: US-ACADIA PHARMACEUTICALS INC.-ACA-2024-PIM-001997

PATIENT
  Age: 77 Year
  Sex: Male

DRUGS (15)
  1. NUPLAZID [Suspect]
     Active Substance: PIMAVANSERIN TARTRATE
     Indication: Parkinson^s disease psychosis
     Dosage: 34 MILLIGRAM, QD
     Route: 048
     Dates: start: 20240405
  2. NUPLAZID [Suspect]
     Active Substance: PIMAVANSERIN TARTRATE
     Indication: Dementia with Lewy bodies
  3. NUPLAZID [Suspect]
     Active Substance: PIMAVANSERIN TARTRATE
     Indication: Parkinson^s disease
  4. EXELON [Concomitant]
     Active Substance: RIVASTIGMINE TARTRATE
  5. VITAMIN C [Concomitant]
     Active Substance: ASCORBIC ACID
  6. VITAMIN D3 [Concomitant]
     Active Substance: CHOLECALCIFEROL
  7. CYANOCOBALAMIN [Concomitant]
     Active Substance: CYANOCOBALAMIN
  8. AVODART [Concomitant]
     Active Substance: DUTASTERIDE
  9. ELIQUIS [Concomitant]
     Active Substance: APIXABAN
  10. ADENOSINE [Concomitant]
     Active Substance: ADENOSINE
  11. PRINIVIL [Concomitant]
     Active Substance: LISINOPRIL
  12. TOPROL XL [Concomitant]
     Active Substance: METOPROLOL SUCCINATE
  13. MEXITIL [Concomitant]
     Active Substance: MEXILETINE HYDROCHLORIDE
  14. MORNIFLUMATE [Concomitant]
     Active Substance: MORNIFLUMATE
  15. LIPITOR [Concomitant]
     Active Substance: ATORVASTATIN CALCIUM

REACTIONS (13)
  - Depressed level of consciousness [Not Recovered/Not Resolved]
  - Delusion [Not Recovered/Not Resolved]
  - Abnormal behaviour [Not Recovered/Not Resolved]
  - Feeling abnormal [Not Recovered/Not Resolved]
  - Food refusal [Not Recovered/Not Resolved]
  - Incoherent [Not Recovered/Not Resolved]
  - Dysarthria [Not Recovered/Not Resolved]
  - Feeling drunk [Not Recovered/Not Resolved]
  - Aphasia [Unknown]
  - Memory impairment [Unknown]
  - Facial asymmetry [Not Recovered/Not Resolved]
  - Gait inability [Not Recovered/Not Resolved]
  - Confusional state [Not Recovered/Not Resolved]

NARRATIVE: CASE EVENT DATE: 20240405
